FAERS Safety Report 14348377 (Version 1)
Quarter: 2018Q1

REPORT INFORMATION
  Report Type: Report from Study
  Country: US (occurrence: BR)
  Receive Date: 20180103
  Receipt Date: 20180103
  Transmission Date: 20180509
  Serious: Yes (Life-Threatening, Hospitalization, Other)
  Sender: FDA-Public Use
  Company Number: US-SUNOVION-2017SUN005543

PATIENT
  Sex: Female

DRUGS (1)
  1. INDACATEROL AND GLYCOPYRROLATE [Suspect]
     Active Substance: GLYCOPYRROLATE\INDACATEROL MALEATE
     Indication: PRODUCT USED FOR UNKNOWN INDICATION
     Route: 055

REACTIONS (7)
  - Hypoxia [Unknown]
  - Cardiac arrest [Unknown]
  - Dyspnoea [Unknown]
  - Brain death [Not Recovered/Not Resolved]
  - General physical health deterioration [Unknown]
  - Apallic syndrome [Not Recovered/Not Resolved]
  - Cardio-respiratory arrest [Unknown]
